FAERS Safety Report 10047266 (Version 3)
Quarter: 2014Q2

REPORT INFORMATION
  Report Type: Spontaneous
  Country: GB (occurrence: GB)
  Receive Date: 20140331
  Receipt Date: 20140429
  Transmission Date: 20141212
  Serious: Yes (Death)
  Sender: FDA-Public Use
  Company Number: GB-JNJFOC-20140313584

PATIENT
  Age: 67 Year
  Sex: Female

DRUGS (12)
  1. STELARA [Suspect]
     Indication: PSORIASIS
     Route: 058
     Dates: start: 20130715
  2. METHOTREXATE [Concomitant]
     Route: 048
  3. RANITIDINE [Concomitant]
     Route: 048
  4. FOLIC ACID [Concomitant]
     Route: 048
  5. CITALOPRAM [Concomitant]
     Route: 048
  6. PREDNISOLONE [Concomitant]
     Route: 048
  7. FLUCLOXACILLIN [Concomitant]
     Route: 042
  8. CHOLECALCIFEROL [Concomitant]
     Route: 048
  9. BENZYLPENICILLIN [Concomitant]
     Route: 042
  10. CYCLIZINE [Concomitant]
     Route: 048
  11. FRAGMIN [Concomitant]
     Route: 065
  12. LINEZOLID [Concomitant]
     Route: 065

REACTIONS (3)
  - Pneumonia [Fatal]
  - Renal failure acute [Not Recovered/Not Resolved]
  - Psoriasis [Not Recovered/Not Resolved]
